FAERS Safety Report 14289740 (Version 1)
Quarter: 2017Q4

REPORT INFORMATION
  Report Type: Report from Study
  Country: US (occurrence: US)
  Receive Date: 20171214
  Receipt Date: 20171214
  Transmission Date: 20180321
  Serious: Yes (Hospitalization)
  Sender: FDA-Public Use
  Company Number: US-EXELIXIS-CABO-17010890

PATIENT
  Age: 68 Year
  Sex: Male

DRUGS (21)
  1. CALTRATE 600+D [Concomitant]
  2. CABOMETYX [Suspect]
     Active Substance: CABOZANTINIB S-MALATE
     Indication: RENAL CANCER
     Dosage: 60 MG, QD
     Route: 048
     Dates: start: 20170815
  3. GLIMEPIRIDE. [Concomitant]
     Active Substance: GLIMEPIRIDE
  4. IMDUR [Concomitant]
     Active Substance: ISOSORBIDE MONONITRATE
  5. ONE DAILY [Concomitant]
  6. AMARYL [Concomitant]
     Active Substance: GLIMEPIRIDE
  7. LEVOTHYROXIN [Concomitant]
     Active Substance: LEVOTHYROXINE
  8. VITAMIN D [Concomitant]
     Active Substance: CHOLECALCIFEROL
  9. OXYCODONE [Concomitant]
     Active Substance: OXYCODONE
  10. XGEVA [Concomitant]
     Active Substance: DENOSUMAB
  11. CABOMETYX [Suspect]
     Active Substance: CABOZANTINIB S-MALATE
     Dosage: 20 MG, QD
     Route: 048
  12. METOPROLOL. [Concomitant]
     Active Substance: METOPROLOL
  13. LANTUS [Concomitant]
     Active Substance: INSULIN GLARGINE
  14. WARFARIN [Concomitant]
     Active Substance: WARFARIN
  15. OMEGA 3 [Concomitant]
     Active Substance: OMEGA-3 FATTY ACIDS
  16. LIPITOR [Concomitant]
     Active Substance: ATORVASTATIN CALCIUM
  17. TYLENOL [Concomitant]
     Active Substance: ACETAMINOPHEN
  18. CODEINE SULFATE. [Concomitant]
     Active Substance: CODEINE SULFATE
  19. RESVERATROL [Concomitant]
     Active Substance: DIETARY SUPPLEMENT\RESVERATROL
  20. NORVASC [Concomitant]
     Active Substance: AMLODIPINE BESYLATE
  21. ASPIRIN. [Concomitant]
     Active Substance: ASPIRIN

REACTIONS (6)
  - Hypoglycaemia [Unknown]
  - Oral pain [Unknown]
  - Diarrhoea [Unknown]
  - Decreased appetite [Unknown]
  - Back injury [Unknown]
  - Weight decreased [Unknown]

NARRATIVE: CASE EVENT DATE: 20170913
